FAERS Safety Report 6304640-4 (Version None)
Quarter: 2009Q3

REPORT INFORMATION
  Report Type: 
  Country: None (occurrence: None)
  Receive Date: 20090811
  Receipt Date: 20090804
  Transmission Date: 20100115
  Serious: Yes (Other)
  Sender: FDA-Public Use
  Company Number: BR-JNJFOC-20090801270

PATIENT
  Sex: Female
  Weight: 64 kg

DRUGS (2)
  1. IMOSEC [Suspect]
     Route: 065
  2. IMOSEC [Suspect]
     Indication: DIARRHOEA
     Route: 065

REACTIONS (4)
  - ACCELERATED HYPERTENSION [None]
  - DRY MOUTH [None]
  - DYSPNOEA [None]
  - PRODUCT QUALITY ISSUE [None]
